FAERS Safety Report 6046356-8 (Version None)
Quarter: 2009Q1

REPORT INFORMATION
  Report Type: 
  Country: None (occurrence: None)
  Receive Date: 20090122
  Receipt Date: 20090115
  Transmission Date: 20090719
  Serious: Yes (Disabling)
  Sender: FDA-Public Use
  Company Number: CA-ASTRAZENECA-2009UW01547

PATIENT
  Age: 58 Year
  Sex: Female

DRUGS (4)
  1. CRESTOR [Suspect]
     Dosage: 10MG
     Route: 048
  2. RIVOTRIL [Concomitant]
  3. SYNTHROID [Concomitant]
  4. VITAMIN D [Concomitant]

REACTIONS (4)
  - BACK PAIN [None]
  - MUSCLE CONTRACTIONS INVOLUNTARY [None]
  - MUSCULAR WEAKNESS [None]
  - MYALGIA [None]
